FAERS Safety Report 23990562 (Version 1)
Quarter: 2024Q2

REPORT INFORMATION
  Report Type: Spontaneous
  Country: US (occurrence: US)
  Receive Date: 20240619
  Receipt Date: 20240619
  Transmission Date: 20240716
  Serious: Yes (Other)
  Sender: FDA-Public Use
  Company Number: US-AVADEL CNS PHARMACEUTICALS, LLC-2024AVA00800

PATIENT
  Age: 34 Year
  Sex: Female
  Weight: 70.295 kg

DRUGS (19)
  1. LUMRYZ [Suspect]
     Active Substance: SODIUM OXYBATE
     Indication: Narcolepsy
     Dosage: 4.5 G, ONCE NIGHTLY
     Route: 048
     Dates: start: 20240501, end: 20240507
  2. LUMRYZ [Suspect]
     Active Substance: SODIUM OXYBATE
     Indication: Cataplexy
  3. LUMRYZ [Suspect]
     Active Substance: SODIUM OXYBATE
     Indication: Narcolepsy
     Dosage: 6 G, ONCE NIGHTLY
     Route: 048
     Dates: start: 20240508, end: 20240514
  4. LUMRYZ [Suspect]
     Active Substance: SODIUM OXYBATE
     Indication: Cataplexy
  5. LUMRYZ [Suspect]
     Active Substance: SODIUM OXYBATE
     Indication: Narcolepsy
     Dosage: 7.5 G, ONCE NIGHTLY
     Route: 048
     Dates: start: 20240515, end: 20240521
  6. LUMRYZ [Suspect]
     Active Substance: SODIUM OXYBATE
     Indication: Cataplexy
  7. LUMRYZ [Suspect]
     Active Substance: SODIUM OXYBATE
     Indication: Narcolepsy
     Dosage: 9 G, ONCE NIGHTLY
     Route: 048
     Dates: start: 20240522, end: 202406
  8. LUMRYZ [Suspect]
     Active Substance: SODIUM OXYBATE
     Indication: Cataplexy
  9. BOTOX [Concomitant]
     Active Substance: ONABOTULINUMTOXINA
     Dosage: UNK, EVERY 3 MONTHS
  10. UBRELVY [Concomitant]
     Active Substance: UBROGEPANT
     Dosage: RESCUE MEDICATION
  11. LOSARTAN [Concomitant]
     Active Substance: LOSARTAN
  12. HYDROCHLOROTHIAZIDE [Concomitant]
     Active Substance: HYDROCHLOROTHIAZIDE
  13. ADDERALL [Concomitant]
     Active Substance: AMPHETAMINE ASPARTATE\AMPHETAMINE SULFATE\DEXTROAMPHETAMINE SACCHARATE\DEXTROAMPHETAMINE SULFATE
     Dosage: 2 X 30 MG A DAY
  14. UNSPECIFIED INGREDIENT [Concomitant]
     Active Substance: UNSPECIFIED INGREDIENT
  15. CLARITIN [Concomitant]
     Active Substance: LORATADINE
     Dosage: UNK, AS NEEDED
  16. ZYRTEC [Concomitant]
     Active Substance: CETIRIZINE HYDROCHLORIDE
     Dosage: UNK, AS NEEDED
  17. QNASL [Concomitant]
     Active Substance: BECLOMETHASONE DIPROPIONATE
  18. PRISTIQ EXTENDED-RELEASE [Concomitant]
     Active Substance: DESVENLAFAXINE SUCCINATE
  19. SUNOSI [Concomitant]
     Active Substance: SOLRIAMFETOL

REACTIONS (17)
  - Loss of consciousness [Recovered/Resolved]
  - Poor quality sleep [Unknown]
  - Dermatillomania [Unknown]
  - Fatigue [Not Recovered/Not Resolved]
  - Middle insomnia [Unknown]
  - Abnormal sleep-related event [Unknown]
  - Balance disorder [Not Recovered/Not Resolved]
  - Illness [Not Recovered/Not Resolved]
  - Snoring [Unknown]
  - Malaise [Not Recovered/Not Resolved]
  - Limb discomfort [Recovered/Resolved]
  - Muscular weakness [Recovered/Resolved]
  - Time perception altered [Not Recovered/Not Resolved]
  - Vomiting [Unknown]
  - Nocturia [Not Recovered/Not Resolved]
  - Nausea [Recovered/Resolved]
  - Intentional dose omission [Recovered/Resolved]

NARRATIVE: CASE EVENT DATE: 20240501
